FAERS Safety Report 5087183-8 (Version None)
Quarter: 2006Q3

REPORT INFORMATION
  Report Type: 
  Country: None (occurrence: None)
  Receive Date: 20060821
  Receipt Date: 20060807
  Transmission Date: 20061208
  Serious: Yes (Hospitalization)
  Sender: FDA-Public Use
  Company Number: 2006001567

PATIENT
  Sex: Male

DRUGS (1)
  1. TARCEVA [Suspect]
     Dates: start: 20060615

REACTIONS (2)
  - BRONCHOSPASM [None]
  - DYSPNOEA [None]
